FAERS Safety Report 25575424 (Version 2)
Quarter: 2025Q3

REPORT INFORMATION
  Report Type: Spontaneous
  Country: US (occurrence: US)
  Receive Date: 20250718
  Receipt Date: 20250725
  Transmission Date: 20251021
  Serious: Yes (Other)
  Sender: BAXTER
  Company Number: US-BAXTER-2025BAX018323

PATIENT
  Age: 66 Year

DRUGS (1)
  1. VASOPRESSIN [Suspect]
     Active Substance: VASOPRESSIN
     Route: 065

REACTIONS (2)
  - Hypotension [Unknown]
  - Device infusion issue [Unknown]

NARRATIVE: CASE EVENT DATE: 20250610
